FAERS Safety Report 7536508-X (Version None)
Quarter: 2011Q2

REPORT INFORMATION
  Report Type: 
  Country: None (occurrence: None)
  Receive Date: 20110524
  Receipt Date: 20110406
  Transmission Date: 20111010
  Serious: Yes (Hospitalization)
  Sender: FDA-Public Use
  Company Number: 026691

PATIENT
  Sex: Male
  Weight: 68.0396 kg

DRUGS (4)
  1. PREDNISONE [Concomitant]
  2. ACETAMINOPHEN [Concomitant]
  3. CELECOXIB [Concomitant]
  4. CIMZIA [Suspect]
     Indication: CROHN'S DISEASE
     Dosage: (200 MG 1X/2 WEEKS SUBCUTANEOUS)
     Route: 058
     Dates: start: 20101210

REACTIONS (1)
  - SMALL INTESTINAL OBSTRUCTION [None]
